FAERS Safety Report 5381268-4 (Version None)
Quarter: 2007Q3

REPORT INFORMATION
  Report Type: 
  Country: None (occurrence: None)
  Receive Date: 20070702
  Receipt Date: 20070426
  Transmission Date: 20080115
  Serious: Yes (Hospitalization)
  Sender: FDA-Public Use
  Company Number: SPV1-2007-02466

PATIENT
  Age: 62 Year
  Sex: Female

DRUGS (6)
  1. PENTASA [Suspect]
     Indication: COLITIS ULCERATIVE
     Dosage: 3 G DAILY, ORAL
     Route: 048
     Dates: start: 20060101
  2. IMUREL /00001501/(AZATHIOPRINE) [Suspect]
     Indication: COLITIS ULCERATIVE
     Dosage: 75 MG DAILY, ORAL
     Route: 048
     Dates: start: 20061201, end: 20070212
  3. DELURSAN(URSODEOXYCHOLIC ACID) [Suspect]
     Indication: CHOLANGITIS
     Dosage: ORAL
     Route: 047
  4. FOSAMAX [Suspect]
     Dosage: ORAL
     Route: 048
  5. INEXIUM /01479302/(ESOMEPRAZOLE MAGNESIUM) [Suspect]
  6. XYZALL /01530201/(LEVOCETIRIZINE) [Suspect]

REACTIONS (1)
  - HYPOPLASTIC ANAEMIA [None]
